FAERS Safety Report 8373068-8 (Version None)
Quarter: 2012Q2

REPORT INFORMATION
  Report Type: 
  Country: None (occurrence: None)
  Receive Date: 20120521
  Receipt Date: 20120511
  Transmission Date: 20120825
  Serious: Yes (Hospitalization)
  Sender: FDA-Public Use
  Company Number: PHHY2012JP023144

PATIENT
  Sex: Male
  Weight: 170 kg

DRUGS (14)
  1. ALDOMET [Concomitant]
     Indication: HYPERTENSION
     Dosage: 750 MG
     Route: 048
     Dates: start: 20101216, end: 20110408
  2. AMLODIPINE/VALSARTAN [Suspect]
     Indication: HYPERTENSION
     Dosage: 1 DF DAILY
     Route: 048
     Dates: start: 20100902, end: 20110609
  3. DIOVAN [Suspect]
     Indication: HYPERTENSION
     Dosage: 80 MG DAILY
     Route: 048
     Dates: start: 20100902
  4. METFFORMIN HYDROCHLORIDE [Concomitant]
     Dosage: 500 MG
  5. AMLODIPINE/VALSARTAN [Suspect]
     Dosage: 1 DF DALIY
     Route: 048
     Dates: start: 20110701
  6. DOXAZOSIN MESYLATE [Concomitant]
     Indication: HYPERTENSION
     Dosage: 4 MG
     Route: 048
  7. ASPIRIN [Concomitant]
     Indication: PROPHYLAXIS
     Dosage: UNK
     Dates: start: 20100603
  8. ETHYL ICOSAPENTATE [Concomitant]
     Indication: PROPHYLAXIS
     Dosage: 1800 MG
     Route: 048
     Dates: start: 20100617
  9. GLYBURIDE [Concomitant]
     Dosage: 2.5 MG
     Route: 048
  10. RASILEZ [Concomitant]
     Indication: HYPERTENSION
     Dosage: 150 MG
     Route: 048
     Dates: start: 20101202, end: 20101215
  11. BASEN OD [Concomitant]
     Dosage: 0.6 MG
  12. DOXAZOSIN MESYLATE [Concomitant]
     Dosage: 8 MG
     Route: 048
  13. NORVASC [Concomitant]
     Indication: HYPERTENSION
     Dosage: 5 MG
     Route: 048
     Dates: start: 20100902, end: 20101013
  14. ALDOMET [Concomitant]
     Dosage: 1500 MG
     Route: 048
     Dates: start: 20110409

REACTIONS (4)
  - SENSATION OF HEAVINESS [None]
  - CEREBRAL HAEMORRHAGE [None]
  - HYPERTENSION [None]
  - BLOOD PRESSURE INADEQUATELY CONTROLLED [None]
